FAERS Safety Report 17610981 (Version 1)
Quarter: 2020Q2

REPORT INFORMATION
  Report Type: Spontaneous
  Country: IT (occurrence: IT)
  Receive Date: 20200401
  Receipt Date: 20200401
  Transmission Date: 20200713
  Serious: Yes (Other)
  Sender: FDA-Public Use
  Company Number: IT-SA-2020SA077249

PATIENT
  Age: 64 Year
  Sex: Male
  Weight: 89 kg

DRUGS (5)
  1. HALOPERIDOL. [Concomitant]
     Active Substance: HALOPERIDOL
     Dosage: UNK
  2. IRINOTECAN HYDROCHLORIDE TRIHYDRATE [IRINOTECAN MONOHYDROCHLORIDE TRIH [Concomitant]
     Indication: COLORECTAL CANCER
     Dosage: 250 MG, QCY
     Route: 042
     Dates: start: 20200107
  3. TELMISARTAN. [Concomitant]
     Active Substance: TELMISARTAN
     Indication: HYPERTENSION
     Dosage: UNK
  4. AFLIBERCEPT [Suspect]
     Active Substance: AFLIBERCEPT
     Indication: COLORECTAL CANCER
     Dosage: 340 MG, QCY
     Route: 042
     Dates: start: 20200107
  5. FLUOROURACIL. [Concomitant]
     Active Substance: FLUOROURACIL
     Dosage: UNK

REACTIONS (6)
  - Pyrexia [Unknown]
  - Pain in extremity [Unknown]
  - Leukopenia [Unknown]
  - Neurotoxicity [Unknown]
  - Constipation [Unknown]
  - Neutropenia [Unknown]

NARRATIVE: CASE EVENT DATE: 20200205
